FAERS Safety Report 12729232 (Version 2)
Quarter: 2016Q4

REPORT INFORMATION
  Report Type: Spontaneous
  Country: CN (occurrence: CN)
  Receive Date: 20160909
  Receipt Date: 20161019
  Transmission Date: 20170207
  Serious: Yes (Hospitalization, Disabling, Other)
  Sender: FDA-Public Use
  Company Number: CN-009507513-1609CHN004538

PATIENT
  Age: 33 Year
  Sex: Male
  Weight: 65 kg

DRUGS (5)
  1. OMEPRAZOLE. [Suspect]
     Active Substance: OMEPRAZOLE
     Indication: RASH
     Dosage: 40 MG, QD
     Route: 041
  2. LORATADINE. [Suspect]
     Active Substance: LORATADINE
     Indication: RASH
     Dosage: 10 MG, QD
     Route: 048
     Dates: start: 20160321, end: 20160406
  3. SOLU-MEDROL [Suspect]
     Active Substance: METHYLPREDNISOLONE SODIUM SUCCINATE
     Indication: RASH
     Dosage: 40 MG, QD
     Route: 041
     Dates: start: 20160321, end: 20160418
  4. SODIUM CHLORIDE. [Suspect]
     Active Substance: SODIUM CHLORIDE
     Indication: RASH
     Dosage: 100 ML, QD
     Route: 041
     Dates: start: 20160321, end: 20160405
  5. CHLORPHENTERMINE [Suspect]
     Active Substance: CHLORPHENTERMINE
     Indication: RASH
     Dosage: 4 MG, TID
     Route: 048
     Dates: start: 20160321, end: 20160406

REACTIONS (2)
  - Transaminases abnormal [Recovered/Resolved with Sequelae]
  - Cardiomyopathy [Recovered/Resolved with Sequelae]

NARRATIVE: CASE EVENT DATE: 20160330
